FAERS Safety Report 19853549 (Version 1)
Quarter: 2021Q3

REPORT INFORMATION
  Report Type: Not Available
  Country: US (occurrence: US)
  Receive Date: 20210919
  Receipt Date: 20210919
  Transmission Date: 20211014
  Serious: No
  Sender: FDA-Public Use
  Company Number: US-RHYTHM PHARMACEUTICALS, INC.-2021RHM000029

PATIENT
  Age: 7 Year
  Sex: Female

DRUGS (2)
  1. IMCIVREE [Suspect]
     Active Substance: SETMELANOTIDE
     Indication: OFF LABEL USE
     Dosage: 3 MG (0.3 ML)
     Route: 058
     Dates: start: 20210612
  2. IMCIVREE [Suspect]
     Active Substance: SETMELANOTIDE
     Indication: PRODUCT USED FOR UNKNOWN INDICATION
     Dosage: 2MG (0.2 ML)
     Route: 058
     Dates: start: 20210605

REACTIONS (6)
  - Weight increased [Not Recovered/Not Resolved]
  - Injection site bruising [Not Recovered/Not Resolved]
  - Skin discolouration [Not Recovered/Not Resolved]
  - Injection site urticaria [Recovered/Resolved]
  - Ephelides [Not Recovered/Not Resolved]
  - Off label use [Not Recovered/Not Resolved]

NARRATIVE: CASE EVENT DATE: 20210612
